FAERS Safety Report 6477810-2 (Version None)
Quarter: 2009Q4

REPORT INFORMATION
  Report Type: 
  Country: None (occurrence: None)
  Receive Date: 20091207
  Receipt Date: 20091201
  Transmission Date: 20100525
  Serious: Yes (Hospitalization)
  Sender: FDA-Public Use
  Company Number: US-JNJFOC-20091200588

PATIENT
  Age: 33 Year
  Sex: Female
  Weight: 93.9 kg

DRUGS (5)
  1. RISPERIDONE [Suspect]
     Indication: SCHIZOAFFECTIVE DISORDER
     Route: 030
  2. LEXAPRO [Concomitant]
     Indication: DEPRESSION
  3. CLONAZEPAM [Concomitant]
     Indication: ANXIETY
  4. SEROQUEL [Concomitant]
     Indication: SCHIZOAFFECTIVE DISORDER
  5. MIRTAZAPINE [Concomitant]
     Indication: SCHIZOAFFECTIVE DISORDER

REACTIONS (2)
  - HOMICIDAL IDEATION [None]
  - SUICIDAL IDEATION [None]
